FAERS Safety Report 5058411-X (Version None)
Quarter: 2006Q2

REPORT INFORMATION
  Report Type: 
  Country: None (occurrence: None)
  Receive Date: 20060627
  Receipt Date: 20050922
  Transmission Date: 20061013
  Serious: Yes (Death)
  Sender: FDA-Public Use
  Company Number: 418895

PATIENT
  Age: 66 Year
  Sex: Female
  Weight: 30.8 kg

DRUGS (4)
  1. XELODA [Suspect]
     Indication: COLON CANCER METASTATIC
     Dosage: 1500 MG DAILY ORAL
     Route: 048
     Dates: start: 20050628, end: 20050815
  2. FLUOROURACIL [Concomitant]
  3. LEUCOVORIN CALCIUM [Concomitant]
  4. ARANESP [Concomitant]

REACTIONS (2)
  - COLON CANCER METASTATIC [None]
  - DEATH [None]
